FAERS Safety Report 20466574 (Version 1)
Quarter: 2022Q1

REPORT INFORMATION
  Report Type: Report from Study
  Country: BR (occurrence: BR)
  Receive Date: 20220213
  Receipt Date: 20220213
  Transmission Date: 20220424
  Serious: Yes (Other)
  Sender: FDA-Public Use
  Company Number: BR-ABBVIE-22K-020-4274116-00

PATIENT
  Age: 56 Year
  Sex: Female
  Weight: 64 kg

DRUGS (1)
  1. SKYRIZI [Suspect]
     Active Substance: RISANKIZUMAB-RZAA
     Indication: Psoriasis
     Route: 058

REACTIONS (5)
  - Skin laceration [Recovering/Resolving]
  - Tendon rupture [Recovering/Resolving]
  - Psoriasis [Not Recovered/Not Resolved]
  - Immunodeficiency [Recovering/Resolving]
  - Nervousness [Recovering/Resolving]

NARRATIVE: CASE EVENT DATE: 20220118
